FAERS Safety Report 7759745-8 (Version None)
Quarter: 2011Q3

REPORT INFORMATION
  Report Type: 
  Country: None (occurrence: None)
  Receive Date: 20110915
  Receipt Date: 20110901
  Transmission Date: 20111222
  Serious: Yes (Hospitalization)
  Sender: FDA-Public Use
  Company Number: KR-JNJFOC-20110707501

PATIENT
  Age: 67 Year
  Sex: Male
  Weight: 60.5 kg

DRUGS (6)
  1. COZAAR [Concomitant]
  2. GLYBURIDE [Concomitant]
  3. CHLORPHENIRAMINE MALEATE [Concomitant]
  4. DECITABINE [Suspect]
     Indication: MYELODYSPLASTIC SYNDROME
     Dosage: 20 MG/M2, 1 IN 1 CYCLICAL, INTRAVENOUS
     Route: 042
     Dates: start: 20110329, end: 20110402
  5. NORVASC [Concomitant]
  6. GLYBURIDE [Concomitant]

REACTIONS (7)
  - DIVERTICULITIS [None]
  - GALLBLADDER DISORDER [None]
  - RENAL CANCER [None]
  - BILE DUCT STONE [None]
  - SEPSIS [None]
  - FEBRILE NEUTROPENIA [None]
  - UPPER RESPIRATORY TRACT INFECTION [None]
